FAERS Safety Report 4301136-6 (Version None)
Quarter: 2004Q1

REPORT INFORMATION
  Report Type: 
  Country: None (occurrence: None)
  Receive Date: 20040218
  Receipt Date: 20031117
  Transmission Date: 20041129
  Serious: No
  Sender: FDA-Public Use
  Company Number: 2003-11-1339

PATIENT
  Age: 38 Year
  Sex: Female
  Weight: 73.4827 kg

DRUGS (5)
  1. PEG-INTRON [Suspect]
     Indication: HEPATITIS C
     Dosage: 120 MCG SUBCUTANEOUS
     Route: 058
     Dates: start: 20030820
  2. COLACE [Concomitant]
  3. PHENERGAN [Concomitant]
  4. XANAX [Concomitant]
  5. CELEXA [Concomitant]

REACTIONS (1)
  - ARTHRALGIA [None]
